APPROVED DRUG PRODUCT: EFAVIRENZ, LAMIVUDINE AND TENOFOVIR DISOPROXIL FUMARATE
Active Ingredient: EFAVIRENZ; LAMIVUDINE; TENOFOVIR DISOPROXIL FUMARATE
Strength: 600MG;300MG;300MG
Dosage Form/Route: TABLET;ORAL
Application: N022343 | Product #001
Applicant: AUROBINDO PHARMA LTD
Approved: Aug 15, 2018 | RLD: Yes | RS: No | Type: DISCN